FAERS Safety Report 15628404 (Version 2)
Quarter: 2022Q1

REPORT INFORMATION
  Report Type: Spontaneous
  Country: CA (occurrence: CA)
  Receive Date: 20181116
  Receipt Date: 20220215
  Transmission Date: 20220423
  Serious: Yes (Death, Hospitalization, Other)
  Sender: FDA-Public Use
  Company Number: CA-PURDUE PHARMA-CAN-2018-0009249

PATIENT
  Age: 74 Year
  Sex: Male
  Weight: 117 kg

DRUGS (40)
  1. MORPHINE SULFATE [Suspect]
     Active Substance: MORPHINE SULFATE
     Indication: Product used for unknown indication
     Dosage: 5 MG, UNK
     Route: 065
  2. MORPHINE SULFATE [Suspect]
     Active Substance: MORPHINE SULFATE
     Dosage: UNK UNK, UNK
     Route: 065
  3. PIRFENIDONE [Suspect]
     Active Substance: PIRFENIDONE
     Indication: Idiopathic pulmonary fibrosis
     Dosage: 267 MG, TID
     Route: 048
  4. PIRFENIDONE [Suspect]
     Active Substance: PIRFENIDONE
     Dosage: 534 MG, TID
     Route: 048
  5. PIRFENIDONE [Suspect]
     Active Substance: PIRFENIDONE
     Dosage: 801 MG, TID
     Route: 048
  6. PIRFENIDONE [Suspect]
     Active Substance: PIRFENIDONE
     Dosage: UNK, TID
     Route: 048
  7. LASIX [Suspect]
     Active Substance: FUROSEMIDE
     Indication: Product used for unknown indication
     Dosage: UNK
     Route: 065
  8. RITUXAN [Suspect]
     Active Substance: RITUXIMAB
     Indication: Rheumatoid arthritis
     Dosage: UNK
     Route: 042
  9. RITUXAN [Suspect]
     Active Substance: RITUXIMAB
     Dosage: 1000 MG, UNK
     Route: 042
  10. RITUXAN [Suspect]
     Active Substance: RITUXIMAB
     Dosage: 801 MG, TID
     Route: 042
  11. RITUXAN [Suspect]
     Active Substance: RITUXIMAB
     Dosage: 534 MG, TID
     Route: 042
  12. MS CONTIN [Concomitant]
     Active Substance: MORPHINE SULFATE
     Indication: Product used for unknown indication
     Dosage: UNK
     Route: 065
  13. MS CONTIN [Concomitant]
     Active Substance: MORPHINE SULFATE
     Dosage: UNK
     Route: 065
  14. ACETAMINOPHEN [Concomitant]
     Active Substance: ACETAMINOPHEN
     Indication: Premedication
     Dosage: 650 MG, UNK
     Route: 048
  15. ACETAMINOPHEN [Concomitant]
     Active Substance: ACETAMINOPHEN
     Dosage: 650 MG, UNK
     Route: 048
  16. ACETAMINOPHEN [Concomitant]
     Active Substance: ACETAMINOPHEN
     Dosage: 650 MG, UNK
     Route: 065
  17. ACETAMINOPHEN [Concomitant]
     Active Substance: ACETAMINOPHEN
     Dosage: 650 MG, UNK
     Route: 048
  18. ACETAMINOPHEN [Concomitant]
     Active Substance: ACETAMINOPHEN
     Dosage: UNK
     Route: 065
  19. ADVAIR HFA [Concomitant]
     Active Substance: FLUTICASONE PROPIONATE\SALMETEROL XINAFOATE
     Indication: Product used for unknown indication
     Dosage: UNK
     Route: 065
  20. ALENDRONATE [Concomitant]
     Active Substance: ALENDRONATE SODIUM
     Indication: Product used for unknown indication
     Dosage: UNK
     Route: 065
  21. ALENDRONATE [Concomitant]
     Active Substance: ALENDRONATE SODIUM
     Dosage: UNK
     Route: 065
  22. ATROVENT [Concomitant]
     Active Substance: IPRATROPIUM BROMIDE
     Indication: Product used for unknown indication
     Dosage: UNK
     Route: 065
  23. DIPHENHYDRAMINE HYDROCHLORIDE [Concomitant]
     Active Substance: DIPHENHYDRAMINE HYDROCHLORIDE
     Indication: Premedication
     Dosage: 50 MG, UNK
     Route: 048
  24. DIPHENHYDRAMINE HYDROCHLORIDE [Concomitant]
     Active Substance: DIPHENHYDRAMINE HYDROCHLORIDE
     Dosage: UNK
     Route: 065
  25. HYDROXYCHLOROQUINE [Concomitant]
     Active Substance: HYDROXYCHLOROQUINE
     Indication: Product used for unknown indication
     Dosage: UNK
     Route: 065
  26. METHYLPREDNISOLONE [Concomitant]
     Active Substance: METHYLPREDNISOLONE
     Indication: Premedication
     Dosage: 100 MG, UNK
     Route: 042
  27. METHYLPREDNISOLONE [Concomitant]
     Active Substance: METHYLPREDNISOLONE
     Dosage: 100 MG, UNK
     Route: 042
  28. METHYLPREDNISOLONE [Concomitant]
     Active Substance: METHYLPREDNISOLONE
     Dosage: UNK
     Route: 065
  29. RANITIDINE [Concomitant]
     Active Substance: RANITIDINE
     Indication: Product used for unknown indication
     Dosage: UNK
     Route: 065
  30. SPIRIVA [Concomitant]
     Active Substance: TIOTROPIUM BROMIDE MONOHYDRATE
     Indication: Product used for unknown indication
     Dosage: UNK
     Route: 065
  31. PANTOPRAZOLE MAGNESIUM [Concomitant]
     Active Substance: PANTOPRAZOLE MAGNESIUM
     Indication: Product used for unknown indication
     Dosage: 40 MG, UNK
     Route: 065
  32. PANTOPRAZOLE MAGNESIUM [Concomitant]
     Active Substance: PANTOPRAZOLE MAGNESIUM
     Dosage: 40 MG, UNK
     Route: 065
  33. PANTOPRAZOLE MAGNESIUM [Concomitant]
     Active Substance: PANTOPRAZOLE MAGNESIUM
     Dosage: 40 MG, DAILY
     Route: 065
  34. PANTOPRAZOLE MAGNESIUM [Concomitant]
     Active Substance: PANTOPRAZOLE MAGNESIUM
     Dosage: UNK
     Route: 065
  35. TYLENOL                            /00020001/ [Concomitant]
     Indication: Product used for unknown indication
     Dosage: UNK
     Route: 065
  36. SALVENT                            /00139501/ [Concomitant]
     Indication: Product used for unknown indication
     Dosage: UNK
     Route: 065
  37. APO-SALVENT                        /00139501/ [Concomitant]
     Indication: Product used for unknown indication
     Dosage: UNK
     Route: 065
  38. TYLENOL ARTHRITIS PAIN [Concomitant]
     Active Substance: ACETAMINOPHEN
     Indication: Product used for unknown indication
     Dosage: UNK
     Route: 065
  39. JUBLIA [Concomitant]
     Active Substance: EFINACONAZOLE
     Indication: Product used for unknown indication
     Dosage: UNK
     Route: 065
  40. ZANTAC [Concomitant]
     Active Substance: RANITIDINE HYDROCHLORIDE
     Indication: Product used for unknown indication
     Dosage: UNK
     Route: 065

REACTIONS (36)
  - Death [Fatal]
  - Arthralgia [Fatal]
  - Blood pressure fluctuation [Fatal]
  - Blood pressure increased [Fatal]
  - Burning sensation [Fatal]
  - Dyspnoea [Fatal]
  - Dyspnoea [Fatal]
  - Dyspnoea exertional [Fatal]
  - Erythema [Fatal]
  - Eyelid disorder [Fatal]
  - Heart rate increased [Fatal]
  - Heart rate increased [Fatal]
  - Idiopathic pulmonary fibrosis [Fatal]
  - Infection [Fatal]
  - Influenza like illness [Fatal]
  - Lower respiratory tract infection [Fatal]
  - Lower respiratory tract infection [Fatal]
  - Lower respiratory tract infection viral [Fatal]
  - Oxygen saturation decreased [Fatal]
  - Oxygen saturation decreased [Fatal]
  - Pneumonia [Fatal]
  - Respiratory rate increased [Fatal]
  - Weight decreased [Fatal]
  - White blood cell count increased [Fatal]
  - Wound [Fatal]
  - Asthenia [Fatal]
  - Constipation [Fatal]
  - Fatigue [Fatal]
  - Fatigue [Fatal]
  - Malaise [Fatal]
  - Peripheral swelling [Fatal]
  - Chills [Fatal]
  - Fall [Fatal]
  - Joint swelling [Fatal]
  - Nasopharyngitis [Fatal]
  - Pulmonary function test decreased [Fatal]
